FAERS Safety Report 5903162-X (Version None)
Quarter: 2008Q3

REPORT INFORMATION
  Report Type: 
  Country: None (occurrence: None)
  Receive Date: 20080926
  Receipt Date: 20080919
  Transmission Date: 20090109
  Serious: Yes (Death, Life-Threatening, Hospitalization)
  Sender: FDA-Public Use
  Company Number: 97731

PATIENT
  Age: 82 Year
  Sex: Female

DRUGS (1)
  1. IBUPROFEN [Suspect]
     Indication: INFLUENZA
     Dosage: 1200 MG/DAY/ORAL
     Route: 048

REACTIONS (4)
  - ANAEMIA [None]
  - DUODENITIS HAEMORRHAGIC [None]
  - GASTRITIS [None]
  - SHOCK [None]
